FAERS Safety Report 6588768-X (Version None)
Quarter: 2010Q1

REPORT INFORMATION
  Report Type: 
  Country: None (occurrence: None)
  Receive Date: 20100218
  Receipt Date: 20100208
  Transmission Date: 20100710
  Serious: Yes (Other)
  Sender: FDA-Public Use
  Company Number: CL-WATSON-2010-01676

PATIENT
  Age: 72 Year
  Sex: Male

DRUGS (1)
  1. PRIMIDONE [Suspect]
     Indication: ESSENTIAL TREMOR
     Dosage: 250 MG, DAILY

REACTIONS (1)
  - SERONEGATIVE ARTHRITIS [None]
